FAERS Safety Report 16000651 (Version 2)
Quarter: 2020Q1

REPORT INFORMATION
  Report Type: Spontaneous
  Country: US (occurrence: US)
  Receive Date: 20190225
  Receipt Date: 20200220
  Transmission Date: 20200409
  Serious: No
  Sender: FDA-Public Use
  Company Number: US-VIFOR (INTERNATIONAL) INC.-VIT-2016-02246

PATIENT
  Age: 74 Year
  Sex: Male

DRUGS (18)
  1. LOSARTAN POTASSIUM. [Concomitant]
     Active Substance: LOSARTAN POTASSIUM
  2. MAGNESIUM CITRATE. [Concomitant]
     Active Substance: MAGNESIUM CITRATE
  3. CALCITRIOL. [Concomitant]
     Active Substance: CALCITRIOL
  4. CLONIDINE HCL [Concomitant]
     Active Substance: CLONIDINE HYDROCHLORIDE
  5. SODIUM BICARBONATE. [Concomitant]
     Active Substance: SODIUM BICARBONATE
  6. AMLODIPINE BESYLATE. [Concomitant]
     Active Substance: AMLODIPINE BESYLATE
  7. FUROSEMIDE. [Concomitant]
     Active Substance: FUROSEMIDE
  8. GLIPIZIDE. [Concomitant]
     Active Substance: GLIPIZIDE
  9. MINOXIDIL. [Concomitant]
     Active Substance: MINOXIDIL
  10. VELTASSA [Suspect]
     Active Substance: PATIROMER
     Indication: HYPERKALAEMIA
     Route: 048
     Dates: start: 20160326
  11. VITAMIN D3 [Concomitant]
     Active Substance: CHOLECALCIFEROL
  12. IRON [Concomitant]
     Active Substance: IRON
  13. MULTIVITAMIN MEN [Concomitant]
  14. ALLOPURINOL. [Concomitant]
     Active Substance: ALLOPURINOL
  15. B12-ACTIVE [Concomitant]
  16. MECOBALAMIN [Concomitant]
     Active Substance: METHYLCOBALAMIN
  17. FINASTERIDE. [Concomitant]
     Active Substance: FINASTERIDE
  18. SIMVASTATIN. [Concomitant]
     Active Substance: SIMVASTATIN

REACTIONS (3)
  - Bowel movement irregularity [Unknown]
  - Influenza like illness [Unknown]
  - Product dose omission [Unknown]

NARRATIVE: CASE EVENT DATE: 20160327
